FAERS Safety Report 4993520-2 (Version None)
Quarter: 2006Q2

REPORT INFORMATION
  Report Type: 
  Country: None (occurrence: None)
  Receive Date: 20060505
  Receipt Date: 20060425
  Transmission Date: 20061013
  Serious: Yes (Hospitalization, Other)
  Sender: FDA-Public Use
  Company Number: US-JNJFOC-20060400089

PATIENT
  Sex: Male
  Weight: 85.28 kg

DRUGS (7)
  1. REMICADE [Suspect]
     Route: 042
  2. REMICADE [Suspect]
     Route: 042
  3. REMICADE [Suspect]
     Dosage: WEEK 0,2, 6,
     Route: 042
  4. PREDNISONE TAB [Concomitant]
  5. PREDNISONE TAB [Concomitant]
  6. DIOVAN [Concomitant]
  7. NORVASC [Concomitant]

REACTIONS (7)
  - PHARYNGITIS STREPTOCOCCAL [None]
  - SINUSITIS [None]
  - STAPHYLOCOCCAL BACTERAEMIA [None]
  - STAPHYLOCOCCAL INFECTION [None]
  - STREPTOCOCCAL BACTERAEMIA [None]
  - UPPER GASTROINTESTINAL HAEMORRHAGE [None]
  - VARICES OESOPHAGEAL [None]
